FAERS Safety Report 9650305 (Version 2)
Quarter: 2013Q4

REPORT INFORMATION
  Report Type: Spontaneous
  Country: US (occurrence: US)
  Receive Date: 20131028
  Receipt Date: 20131028
  Transmission Date: 20140711
  Serious: No
  Sender: FDA-Public Use
  Company Number: US-PURDUE-USA-2010-0059264

PATIENT
  Age: 64 Year
  Sex: Female
  Weight: 126.98 kg

DRUGS (2)
  1. OXYCONTIN (NDA 22-272) [Suspect]
     Indication: PAIN
     Dosage: 30 MG, BID
     Route: 048
     Dates: start: 201011
  2. OXYCONTIN (NDA 22-272) [Suspect]
     Dosage: 80 MG, BID
     Route: 048

REACTIONS (1)
  - Drug effect decreased [Not Recovered/Not Resolved]
